FAERS Safety Report 6017142-X (Version None)
Quarter: 2008Q4

REPORT INFORMATION
  Report Type: 
  Country: None (occurrence: None)
  Receive Date: 20081223
  Receipt Date: 20081217
  Transmission Date: 20090506
  Serious: No
  Sender: FDA-Public Use
  Company Number: FR-BRISTOL-MYERS SQUIBB COMPANY-14277347

PATIENT
  Age: 42 Year
  Sex: Male

DRUGS (7)
  1. ABILIFY [Suspect]
     Indication: SCHIZOPHRENIA
     Dosage: DOSE REDUCED TO 5 MG/D.
     Route: 048
     Dates: start: 20080701, end: 20081015
  2. LEPONEX [Concomitant]
     Indication: SCHIZOPHRENIA
  3. DEPAKENE [Concomitant]
     Dosage: DEPAKINE 500 MG. TAKEN AS TABS.
     Route: 048
  4. RIVOTRIL [Concomitant]
     Dosage: RIVOTRIL 2 MG TAKEN AS TABS.
     Route: 048
  5. IRBESARTAN [Concomitant]
     Dosage: APROVEL 300. TAKEN AS TABS.
     Route: 048
  6. ELISOR TABS 20 MG [Concomitant]
     Dosage: ELISOR 20. TAKEN AS TABS.
     Route: 048
  7. GLUCOPHAGE [Concomitant]
     Dosage: GLUCOPHAGE 850. TAKEN AS TABS.
     Route: 048

REACTIONS (1)
  - NEUTROPENIA [None]
